FAERS Safety Report 6480295-3 (Version None)
Quarter: 2009Q4

REPORT INFORMATION
  Report Type: 
  Country: None (occurrence: None)
  Receive Date: 20091208
  Receipt Date: 20091126
  Transmission Date: 20100525
  Serious: Yes (Other)
  Sender: FDA-Public Use
  Company Number: FR-ELI_LILLY_AND_COMPANY-FR200910003758

PATIENT
  Age: 52 Year
  Sex: Female

DRUGS (5)
  1. ZYPREXA [Suspect]
     Indication: SCHIZOAFFECTIVE DISORDER
     Dosage: 10 MG, DAILY (1/D)
     Route: 048
     Dates: start: 20050101
  2. EFFEXOR [Concomitant]
     Dosage: 112.5 MG, DAILY (1/D)
     Route: 048
     Dates: start: 20010101
  3. TERALITHE [Concomitant]
     Indication: BIPOLAR DISORDER
     Dosage: 1 G, DAILY (1/D)
     Route: 048
     Dates: start: 19980101
  4. LEXOMIL [Concomitant]
     Dosage: 4 MG, DAILY (1/D)
     Route: 048
     Dates: start: 19980101
  5. ZOLPIDEM [Concomitant]
     Dosage: UNK, UNKNOWN
     Route: 048

REACTIONS (2)
  - HYPERCALCAEMIA [None]
  - PARATHYROID TUMOUR BENIGN [None]
